FAERS Safety Report 24254544 (Version 2)
Quarter: 2024Q3

REPORT INFORMATION
  Report Type: Spontaneous
  Country: US (occurrence: US)
  Receive Date: 20240827
  Receipt Date: 20240925
  Transmission Date: 20241016
  Serious: Yes (Other)
  Sender: AMGEN
  Company Number: US-AMGEN-USASP2024169174

PATIENT
  Age: 5 Year
  Sex: Female

DRUGS (1)
  1. PROCYSBI [Suspect]
     Active Substance: CYSTEAMINE BITARTRATE
     Indication: Cystinosis
     Dosage: UNK
     Route: 065
     Dates: start: 201404

REACTIONS (10)
  - Intestinal stenosis [Unknown]
  - Small intestinal obstruction [Unknown]
  - Abdominal adhesions [Unknown]
  - Appendicitis [Unknown]
  - Colitis [Unknown]
  - Gastrointestinal perforation [Unknown]
  - Clostridium difficile colitis [Unknown]
  - Gastrointestinal inflammation [Unknown]
  - Gastrointestinal scarring [Unknown]
  - Intestinal fibrosis [Unknown]

NARRATIVE: CASE EVENT DATE: 20170101
